FAERS Safety Report 24790649 (Version 1)
Quarter: 2024Q4

REPORT INFORMATION
  Report Type: Report from Study
  Country: CA (occurrence: CA)
  Receive Date: 20241230
  Receipt Date: 20241230
  Transmission Date: 20250114
  Serious: Yes (Hospitalization, Other)
  Sender: JAZZ
  Company Number: CA-JAZZ PHARMACEUTICALS-2024-CA-025044

PATIENT
  Age: 26 Year
  Sex: Male

DRUGS (8)
  1. XYREM [Suspect]
     Active Substance: SODIUM OXYBATE
     Indication: Cataplexy
     Dosage: 4.5G, OTHER
     Route: 048
     Dates: start: 20121116, end: 20130115
  2. XYREM [Suspect]
     Active Substance: SODIUM OXYBATE
     Dosage: 6G, OTHER
     Route: 048
     Dates: start: 20130116, end: 20130326
  3. XYREM [Suspect]
     Active Substance: SODIUM OXYBATE
     Dosage: 7.5G, OTHER
     Route: 048
     Dates: start: 20130327, end: 20150715
  4. XYREM [Suspect]
     Active Substance: SODIUM OXYBATE
     Dosage: 9G, OTHER
     Route: 048
     Dates: start: 20150716
  5. RITALIN [Concomitant]
     Active Substance: METHYLPHENIDATE HYDROCHLORIDE
     Indication: Product used for unknown indication
     Dosage: 10 MILLIGRAM, QD
     Route: 048
  6. MODAFINIL [Concomitant]
     Active Substance: MODAFINIL
     Indication: Product used for unknown indication
     Dosage: 300MG AM, 200MG NOON
     Route: 048
  7. EFFEXOR [Concomitant]
     Active Substance: VENLAFAXINE HYDROCHLORIDE
     Indication: Product used for unknown indication
     Dosage: 37.5 MILLIGRAM, QD
  8. ADDERALL [Concomitant]
     Active Substance: AMPHETAMINE ASPARTATE\AMPHETAMINE SULFATE\DEXTROAMPHETAMINE SACCHARATE\DEXTROAMPHETAMINE SULFATE
     Indication: Product used for unknown indication
     Dosage: 30MG 1 TAB AM, 10MG 12PM QD

REACTIONS (1)
  - Surgery [Unknown]

NARRATIVE: CASE EVENT DATE: 20241219
